FAERS Safety Report 10447001 (Version 2)
Quarter: 2014Q4

REPORT INFORMATION
  Report Type: Report from Study
  Country: US (occurrence: US)
  Receive Date: 20140911
  Receipt Date: 20141021
  Transmission Date: 20150528
  Serious: Yes (Death)
  Sender: FDA-Public Use
  Company Number: PHEH2014US017966

PATIENT
  Age: 47 Year
  Sex: Female

DRUGS (1)
  1. EXJADE [Suspect]
     Active Substance: DEFERASIROX
     Indication: MYELODYSPLASTIC SYNDROME
     Dosage: 2000 MG (500 MG, DISSOLVED 04 TABLETS AND TAKEN ONCE DAILY)
     Route: 048
     Dates: start: 20120120

REACTIONS (1)
  - Death [Fatal]

NARRATIVE: CASE EVENT DATE: 20141015
